FAERS Safety Report 5277218-1 (Version None)
Quarter: 2007Q1

REPORT INFORMATION
  Report Type: 
  Country: None (occurrence: None)
  Receive Date: 20070322
  Receipt Date: 20070322
  Transmission Date: 20070707
  Serious: Yes (Disabling, Other)
  Sender: FDA-Public Use
  Company Number: None

PATIENT
  Age: 56 Year
  Sex: Female
  Weight: 54.4316 kg

DRUGS (1)
  1. KIRKLAND CALCIUM CITRATE KIRKLAND [Suspect]
     Indication: OSTEOPOROSIS
     Dosage: 2 TABLETS NOC PO
     Route: 048
     Dates: start: 20070102, end: 20070310

REACTIONS (9)
  - ABDOMINAL PAIN UPPER [None]
  - DIARRHOEA [None]
  - EXCORIATION [None]
  - GASTROINTESTINAL DISORDER [None]
  - HAEMORRHOIDS [None]
  - LOSS OF EMPLOYMENT [None]
  - MALAISE [None]
  - PAIN IN EXTREMITY [None]
  - RECTAL HAEMORRHAGE [None]
